FAERS Safety Report 9104056 (Version 1)
Quarter: 2013Q1

REPORT INFORMATION
  Report Type: Spontaneous
  Country: US (occurrence: US)
  Receive Date: 20130219
  Receipt Date: 20130219
  Transmission Date: 20140127
  Serious: Yes (Death, Other)
  Sender: FDA-Public Use
  Company Number: PHEH2013US003963

PATIENT
  Sex: Male

DRUGS (1)
  1. AFINITOR [Suspect]
     Dosage: 5 MG, QD
     Route: 048

REACTIONS (5)
  - Death [Fatal]
  - Thrombosis [Unknown]
  - Cerebrovascular accident [Unknown]
  - Convulsion [Unknown]
  - Coma [Unknown]
